FAERS Safety Report 5326836-0 (Version None)
Quarter: 2007Q2

REPORT INFORMATION
  Report Type: 
  Country: None (occurrence: None)
  Receive Date: 20070504
  Receipt Date: 20070423
  Transmission Date: 20071010
  Serious: Yes (Other)
  Sender: FDA-Public Use
  Company Number: B0468692A

PATIENT
  Sex: 0

DRUGS (4)
  1. ALKERAN [Suspect]
     Indication: MULTIPLE MYELOMA
     Dosage: MG/M2 / PER DAY / ORAL
     Route: 048
  2. PREDNISONE [Suspect]
     Indication: MULTIPLE MYELOMA
     Dosage: 60 MG/M2 / PER DAY / ORAL
     Route: 048
  3. BORTEZOMIB (FORMULATION UNKNOWN) (BORTEZOMIB) [Suspect]
     Indication: MULTIPLE MYELOMA
     Dosage: UNK / SEE DOSAGE TEXT / INTRAVENO
     Route: 042
  4. THALIDOMIDE [Suspect]
     Indication: MULTIPLE MYELOMA
     Dosage: 50 MG / PER DAY / ORAL
     Route: 048

REACTIONS (1)
  - PNEUMONIA [None]
